FAERS Safety Report 8341272-0 (Version None)
Quarter: 2012Q2

REPORT INFORMATION
  Report Type: 
  Country: None (occurrence: None)
  Receive Date: 20120507
  Receipt Date: 20120430
  Transmission Date: 20120825
  Serious: Yes (Death, Other)
  Sender: FDA-Public Use
  Company Number: US-CELGENEUS-163-21880-11062209

PATIENT
  Sex: Female

DRUGS (8)
  1. PRILOSEC [Concomitant]
     Dosage: 20 MILLIGRAM
     Route: 048
  2. REVLIMID [Suspect]
     Indication: MULTIPLE MYELOMA
     Dosage: 15 MILLIGRAM
     Route: 048
     Dates: start: 20110320, end: 20110601
  3. VITAMIN B-12 [Concomitant]
     Dosage: 1000 MICROGRAM
     Route: 048
  4. CALCIUM 600 + D [Concomitant]
     Dosage: 1000-400MG
     Route: 048
  5. DECADRON [Concomitant]
     Dosage: 40 MILLIGRAM
     Route: 048
  6. ECOTRIN LOW STRENGTH [Concomitant]
     Dosage: 81 MILLIGRAM
     Route: 048
  7. MULTI-VITAMINS [Concomitant]
     Dosage: 1 CAPSULE
     Route: 048
  8. ZOMETA [Concomitant]
     Route: 065

REACTIONS (4)
  - PANCYTOPENIA [None]
  - MULTIPLE MYELOMA [None]
  - STOMATITIS [None]
  - OEDEMA PERIPHERAL [None]
